FAERS Safety Report 6013777-9 (Version None)
Quarter: 2008Q4

REPORT INFORMATION
  Report Type: 
  Country: None (occurrence: None)
  Receive Date: 20081218
  Receipt Date: 20081218
  Transmission Date: 20090506
  Serious: Yes (Hospitalization)
  Sender: FDA-Public Use
  Company Number: None

PATIENT
  Age: 59 Year
  Sex: Male
  Weight: 93.9 kg

DRUGS (10)
  1. OLANZAPINE [Suspect]
     Dosage: 10MG TWICE A DAY ORAL
     Route: 048
     Dates: start: 20080923, end: 20080930
  2. OLANZAPINE [Suspect]
     Dosage: 20MG  ONCE A DAY ORAL
     Route: 048
     Dates: start: 20050228, end: 20050407
  3. ATORVASTATIN CALCIUM [Concomitant]
  4. PAMOTIDINE [Concomitant]
  5. BENZTROPINE MESYLATE [Concomitant]
  6. AMLODIPINE [Concomitant]
  7. FOLIC ACID [Concomitant]
  8. ASPIRIN [Concomitant]
  9. LEVOTHYROXINE [Concomitant]
  10. DOCUSATE [Concomitant]

REACTIONS (2)
  - HYPOTHERMIA [None]
  - UNEVALUABLE EVENT [None]
